FAERS Safety Report 6248577-8 (Version None)
Quarter: 2009Q2

REPORT INFORMATION
  Report Type: 
  Country: None (occurrence: None)
  Receive Date: 20090624
  Receipt Date: 20090615
  Transmission Date: 20091009
  Serious: Yes (Hospitalization, Other)
  Sender: FDA-Public Use
  Company Number: US-1169546

PATIENT
  Age: 64 Year
  Sex: Male

DRUGS (1)
  1. TRIESENCE [Suspect]
     Dosage: 4 MG INTRAVITREAL INJECTIONOS INTRAOCULAR
     Route: 031
     Dates: start: 20090414, end: 20090414

REACTIONS (4)
  - POST PROCEDURAL COMPLICATION [None]
  - RETINAL DETACHMENT [None]
  - UVEITIS [None]
  - VITRITIS [None]
